FAERS Safety Report 19889053 (Version 2)
Quarter: 2021Q4

REPORT INFORMATION
  Report Type: Spontaneous
  Country: CA (occurrence: CA)
  Receive Date: 20210927
  Receipt Date: 20211105
  Transmission Date: 20220303
  Serious: Yes (Death, Life-Threatening, Other)
  Sender: FDA-Public Use
  Company Number: CA-TEVA-2021-CA-1957390

PATIENT
  Age: 61 Year
  Sex: Male

DRUGS (3)
  1. METOPROLOL [Interacting]
     Active Substance: METOPROLOL
     Indication: Hypertension
     Dosage: 200 MILLIGRAM DAILY;
     Route: 065
  2. EPINEPHRINE [Suspect]
     Active Substance: EPINEPHRINE
     Route: 030
  3. QUINAPRIL HYDROCHLORIDE [Concomitant]
     Active Substance: QUINAPRIL HYDROCHLORIDE
     Route: 065

REACTIONS (8)
  - Anaphylactic shock [Fatal]
  - Angioedema [Fatal]
  - Cardio-respiratory arrest [Fatal]
  - Drug ineffective [Fatal]
  - Drug interaction [Fatal]
  - Dyspnoea [Fatal]
  - Expired product administered [Fatal]
  - Vomiting [Fatal]
